FAERS Safety Report 14692900 (Version 4)
Quarter: 2018Q2

REPORT INFORMATION
  Report Type: Spontaneous
  Country: DE (occurrence: DE)
  Receive Date: 20180329
  Receipt Date: 20180625
  Transmission Date: 20180711
  Serious: Yes (Life-Threatening, Hospitalization, Other)
  Sender: FDA-Public Use
  Company Number: PHHY2018DE041649

PATIENT
  Age: 74 Year
  Sex: Female

DRUGS (6)
  1. JARDIANCE [Suspect]
     Active Substance: EMPAGLIFLOZIN
     Indication: PRODUCT USED FOR UNKNOWN INDICATION
     Dosage: 110 DF, (10 MG EACH)
     Route: 065
  2. ACETYLSALICYLIC ACID [Suspect]
     Active Substance: ASPIRIN
     Dosage: 15 UG/L, QD
     Route: 065
  3. JARDIANCE [Suspect]
     Active Substance: EMPAGLIFLOZIN
     Dosage: 100 DF, QD
     Route: 065
  4. ACETYLSALICYLIC ACID [Suspect]
     Active Substance: ASPIRIN
     Indication: PRODUCT USED FOR UNKNOWN INDICATION
     Dosage: 100 MG, UNK
     Route: 065
  5. TRAMADOL. [Suspect]
     Active Substance: TRAMADOL
     Indication: PRODUCT USED FOR UNKNOWN INDICATION
     Dosage: 20 MG, UNK
     Route: 065
  6. NYSTATIN. [Concomitant]
     Active Substance: NYSTATIN
     Indication: PRODUCT USED FOR UNKNOWN INDICATION
     Route: 065

REACTIONS (11)
  - White blood cell count increased [Unknown]
  - Intentional overdose [Unknown]
  - Somnolence [Unknown]
  - Coronary artery stenosis [Unknown]
  - Blood glucose increased [Unknown]
  - Ventricular fibrillation [Unknown]
  - Hemiplegia [Unknown]
  - Atrial fibrillation [Unknown]
  - Hypoglycaemia [Recovered/Resolved]
  - Suicide attempt [Unknown]
  - Torsade de pointes [Unknown]
